FAERS Safety Report 7842362-9 (Version None)
Quarter: 2011Q4

REPORT INFORMATION
  Report Type: 
  Country: None (occurrence: None)
  Receive Date: 20111025
  Receipt Date: 20111018
  Transmission Date: 20120403
  Serious: Yes (Hospitalization, Other)
  Sender: FDA-Public Use
  Company Number: BE-BAYER-2011-030034

PATIENT
  Sex: Male

DRUGS (2)
  1. NEXAVAR [Suspect]
     Dosage: 400 MG, QD
     Route: 048
  2. NEXAVAR [Suspect]
     Indication: HEPATIC NEOPLASM MALIGNANT
     Dosage: DAILY DOSE 800 MG
     Dates: start: 20110216

REACTIONS (6)
  - FAECES DISCOLOURED [None]
  - HYPOTENSION [None]
  - GASTRIC HAEMORRHAGE [None]
  - GASTRITIS [None]
  - HAEMATOCHEZIA [None]
  - GASTRIC ULCER HAEMORRHAGE [None]
